FAERS Safety Report 24858018 (Version 1)
Quarter: 2025Q1

REPORT INFORMATION
  Report Type: Spontaneous
  Country: US (occurrence: US)
  Receive Date: 20250117
  Receipt Date: 20250117
  Transmission Date: 20250409
  Serious: No
  Sender: SANOFI AVENTIS
  Company Number: US-SA-2025SA012163

PATIENT
  Age: 69 Year
  Sex: Male

DRUGS (17)
  1. REZUROCK [Suspect]
     Active Substance: BELUMOSUDIL
     Indication: Chronic graft versus host disease
     Dosage: 200 MG, QD
     Route: 048
  2. ACYCLOVIR [Concomitant]
     Active Substance: ACYCLOVIR
  3. BACTRIM DS [Concomitant]
     Active Substance: SULFAMETHOXAZOLE\TRIMETHOPRIM
  4. CARAFATE [Concomitant]
     Active Substance: SUCRALFATE
  5. SENNA [Concomitant]
     Active Substance: SENNOSIDES
  6. ELIQUIS [Concomitant]
     Active Substance: APIXABAN
  7. JAKAFI [Concomitant]
     Active Substance: RUXOLITINIB
  8. VITAMIN D3 [Concomitant]
     Active Substance: CHOLECALCIFEROL
  9. LASIX [Concomitant]
     Active Substance: FUROSEMIDE
  10. MIRALAX [Concomitant]
     Active Substance: POLYETHYLENE GLYCOL 3350
  11. MORPHINE SULFATE [Concomitant]
     Active Substance: MORPHINE SULFATE
  12. NORCO [Concomitant]
     Active Substance: ACETAMINOPHEN\HYDROCODONE BITARTRATE
  13. PEPCID AC [Concomitant]
     Active Substance: FAMOTIDINE
  14. PREDNISONE [Concomitant]
     Active Substance: PREDNISONE
  15. REMERON [Concomitant]
     Active Substance: MIRTAZAPINE
  16. TACROLIMUS [Concomitant]
     Active Substance: TACROLIMUS
  17. VIMPAT [Concomitant]
     Active Substance: LACOSAMIDE

REACTIONS (3)
  - Pain [Unknown]
  - Diarrhoea [Unknown]
  - Fatigue [Unknown]
